FAERS Safety Report 13428944 (Version 2)
Quarter: 2017Q2

REPORT INFORMATION
  Report Type: Spontaneous
  Country: AU (occurrence: AU)
  Receive Date: 20170411
  Receipt Date: 20170508
  Transmission Date: 20170830
  Serious: Yes (Other)
  Sender: FDA-Public Use
  Company Number: AU-NAPPMUNDI-GBR-2017-0044567

PATIENT
  Age: 68 Year
  Sex: Female

DRUGS (35)
  1. ADALIMUMAB [Concomitant]
     Active Substance: ADALIMUMAB
  2. CHOLECALCIFEROL [Concomitant]
     Active Substance: CHOLECALCIFEROL
  3. RANITIDINE. [Concomitant]
     Active Substance: RANITIDINE
  4. DEXTROPROPOXYPHENE [Suspect]
     Active Substance: PROPOXYPHENE HYDROCHLORIDE
     Indication: PRODUCT USED FOR UNKNOWN INDICATION
     Dosage: UNK
     Route: 065
  5. CALCITRIOL. [Concomitant]
     Active Substance: CALCITRIOL
  6. DOMPERIDONE [Concomitant]
     Active Substance: DOMPERIDONE
  7. PARACETAMOL WITH CODEINE PHOSPHATE [Concomitant]
     Active Substance: ACETAMINOPHEN\CODEINE PHOSPHATE
  8. SALBUTAMOL [Concomitant]
     Active Substance: ALBUTEROL
  9. CEFTRIAXONE. [Concomitant]
     Active Substance: CEFTRIAXONE
  10. METHOTREXATE. [Concomitant]
     Active Substance: METHOTREXATE
  11. GABAPENTIN. [Suspect]
     Active Substance: GABAPENTIN
     Indication: PRODUCT USED FOR UNKNOWN INDICATION
     Dosage: UNK
     Route: 065
  12. MIRTAZAPINE. [Suspect]
     Active Substance: MIRTAZAPINE
     Indication: PRODUCT USED FOR UNKNOWN INDICATION
     Dosage: UNK
     Route: 065
  13. PENICILLIN                         /00000901/ [Suspect]
     Active Substance: PENICILLIN G
     Indication: PRODUCT USED FOR UNKNOWN INDICATION
     Dosage: UNK
     Route: 065
  14. CALCIUM GLUCONATE. [Concomitant]
     Active Substance: CALCIUM GLUCONATE
  15. POTASSIUM [Concomitant]
     Active Substance: POTASSIUM
  16. OXYCONTIN [Concomitant]
     Active Substance: OXYCODONE HYDROCHLORIDE
  17. OLIVE OIL [Concomitant]
     Active Substance: OLIVE OIL
  18. PANTOPRAZOLE [Concomitant]
     Active Substance: PANTOPRAZOLE
  19. PROBIOTICS NOS [Concomitant]
     Active Substance: PROBIOTICS NOS
  20. OXYCODONE HYDROCHLORIDE. [Suspect]
     Active Substance: OXYCODONE HYDROCHLORIDE
     Indication: PRODUCT USED FOR UNKNOWN INDICATION
     Dosage: UNK
     Route: 065
  21. TRAMADOL. [Suspect]
     Active Substance: TRAMADOL
     Indication: PRODUCT USED FOR UNKNOWN INDICATION
     Dosage: UNK
     Route: 065
  22. CALCIUM [Concomitant]
     Active Substance: CALCIUM
  23. CELECOXIB. [Concomitant]
     Active Substance: CELECOXIB
  24. AMITRIPTYLINE [Suspect]
     Active Substance: AMITRIPTYLINE
     Indication: PRODUCT USED FOR UNKNOWN INDICATION
     Dosage: UNK
     Route: 065
  25. DULOXETINE. [Suspect]
     Active Substance: DULOXETINE
     Indication: PRODUCT USED FOR UNKNOWN INDICATION
     Dosage: UNK
     Route: 065
  26. FLUOXETINE [Suspect]
     Active Substance: FLUOXETINE HYDROCHLORIDE
     Indication: PRODUCT USED FOR UNKNOWN INDICATION
     Dosage: UNK
     Route: 065
  27. PETHIDINE [Suspect]
     Active Substance: MEPERIDINE
     Indication: PRODUCT USED FOR UNKNOWN INDICATION
     Dosage: UNK
     Route: 065
  28. HYOSCINE [Concomitant]
     Active Substance: SCOPOLAMINE
  29. METRONIDAZOLE. [Concomitant]
     Active Substance: METRONIDAZOLE
  30. ALENDRONATE [Suspect]
     Active Substance: ALENDRONATE SODIUM
     Indication: PRODUCT USED FOR UNKNOWN INDICATION
     Dosage: UNK
     Route: 065
  31. FRUSEMIDE                          /00032601/ [Suspect]
     Active Substance: FUROSEMIDE
     Indication: PRODUCT USED FOR UNKNOWN INDICATION
     Dosage: UNK
     Route: 065
  32. PREGABALIN. [Suspect]
     Active Substance: PREGABALIN
     Indication: PRODUCT USED FOR UNKNOWN INDICATION
     Dosage: UNK
     Route: 065
  33. PROLIA [Suspect]
     Active Substance: DENOSUMAB
     Indication: PRODUCT USED FOR UNKNOWN INDICATION
     Dosage: 60 MG CYCLICAL
     Route: 058
  34. FOLIC ACID. [Concomitant]
     Active Substance: FOLIC ACID
  35. ONDASETRON                         /00955301/ [Concomitant]
     Active Substance: ONDANSETRON

REACTIONS (20)
  - Delusion [Unknown]
  - Headache [Unknown]
  - Oesophageal perforation [Unknown]
  - Abdominal discomfort [Unknown]
  - Dry mouth [Unknown]
  - Rash [Unknown]
  - Pain [Unknown]
  - Acute kidney injury [Unknown]
  - Adrenal insufficiency [Unknown]
  - Influenza like illness [Unknown]
  - Hallucination [Unknown]
  - Dyspepsia [Unknown]
  - Nausea [Unknown]
  - Hypocalcaemia [Unknown]
  - Dizziness [Unknown]
  - Night sweats [Unknown]
  - Polyuria [Unknown]
  - Vomiting [Unknown]
  - Diarrhoea [Unknown]
  - Hypokalaemia [Unknown]

NARRATIVE: CASE EVENT DATE: 20170111
